FAERS Safety Report 4305077-X (Version None)
Quarter: 2004Q1

REPORT INFORMATION
  Report Type: 
  Country: None (occurrence: None)
  Receive Date: 20040226
  Receipt Date: 20040223
  Transmission Date: 20041129
  Serious: Yes (Congenital Anomaly)
  Sender: FDA-Public Use
  Company Number: US-GLAXOSMITHKLINE-A0499493A

PATIENT
  Sex: Male
  Weight: 3.4 kg

DRUGS (5)
  1. COMBIVIR [Suspect]
     Indication: HIV INFECTION
     Dosage: 2TAB PER DAY
     Dates: start: 20011008
  2. DDI [Suspect]
     Indication: HIV INFECTION
     Dosage: 400MG PER DAY
     Dates: start: 20030529
  3. VIRACEPT [Suspect]
     Indication: HIV INFECTION
     Dosage: 2500MG PER DAY
     Dates: start: 20010814, end: 20030529
  4. FORTOVASE [Suspect]
     Indication: HIV INFECTION
     Dosage: 3600MG PER DAY
     Dates: start: 20030529
  5. RITONAVIR [Suspect]
     Indication: HIV INFECTION
     Dosage: 200MG PER DAY
     Dates: start: 20030529

REACTIONS (5)
  - ANOMALY OF EXTERNAL EAR CONGENITAL [None]
  - EAR MALFORMATION [None]
  - EXTERNAL AUDITORY CANAL ATRESIA [None]
  - MATERNAL DRUGS AFFECTING FOETUS [None]
  - TYMPANIC MEMBRANE DISORDER [None]
